FAERS Safety Report 10248258 (Version 2)
Quarter: 2014Q3

REPORT INFORMATION
  Report Type: Spontaneous
  Country: US (occurrence: US)
  Receive Date: 20140620
  Receipt Date: 20140730
  Transmission Date: 20150326
  Serious: Yes (Hospitalization, Other)
  Sender: FDA-Public Use
  Company Number: US-UCBSA-2014002581

PATIENT
  Age: 22 Year
  Sex: Female
  Weight: 49 kg

DRUGS (14)
  1. ACYCLOVIR. [Concomitant]
     Active Substance: ACYCLOVIR
     Dosage: UNK
     Dates: start: 20140307
  2. PROTONIX [Concomitant]
     Active Substance: PANTOPRAZOLE SODIUM
     Dosage: 40 MG, ONCE DAILY (QD)
     Route: 048
     Dates: start: 20140307
  3. BACTRIM DS [Concomitant]
     Active Substance: SULFAMETHOXAZOLE\TRIMETHOPRIM
     Dosage: DS 1QM,W,F
     Route: 048
     Dates: start: 20140307
  4. VENLAFAXINE [Concomitant]
     Active Substance: VENLAFAXINE HYDROCHLORIDE
     Dosage: 225 MG, ONCE DAILY (QD) QAM
     Route: 048
  5. MYFORTIC [Concomitant]
     Active Substance: MYCOPHENOLATE SODIUM
     Dosage: 720 MG, 2X/DAY (BID)
     Route: 048
     Dates: start: 20140307
  6. VIMPAT [Suspect]
     Active Substance: LACOSAMIDE
     Dosage: 3-5 TABLETS WITH MEALS AND 2 WITH SNACKS, 750MG-1000MG DAILY, DRUG WAS TAPERED
     Route: 048
     Dates: start: 20140520, end: 20140612
  7. ASA [Concomitant]
     Active Substance: ASPIRIN
     Dosage: 81 MG, ONCE DAILY (QD)
     Route: 048
     Dates: start: 20140307
  8. GABAPENTIN. [Concomitant]
     Active Substance: GABAPENTIN
     Dosage: 300 MG, 3X/DAY (TID)
     Route: 048
     Dates: start: 20140307
  9. ANOXAPARIN [Concomitant]
     Dosage: 80 MG, ONCE DAILY (QD)
     Route: 048
     Dates: start: 20140307
  10. TACROLIMUS. [Concomitant]
     Active Substance: TACROLIMUS
     Dosage: 5.5 MG, 2X/DAY (BID)
     Route: 048
     Dates: start: 20140307
  11. CLONAZEPAM. [Concomitant]
     Active Substance: CLONAZEPAM
     Dosage: 1 MG, ONCE DAILY (QD) EVERY NIGHT AT BEDTIME
     Route: 048
     Dates: start: 20140307
  12. PREDNISONE. [Concomitant]
     Active Substance: PREDNISONE
     Dosage: 0 MG, ONCE DAILY (QD)
     Route: 048
     Dates: start: 20140307
  13. CREON [Concomitant]
     Active Substance: PANCRELIPASE AMYLASE\PANCRELIPASE LIPASE\PANCRELIPASE PROTEASE
     Dosage: UNK
     Dates: start: 2014, end: 20140520
  14. BUSPIRONE [Concomitant]
     Active Substance: BUSPIRONE HYDROCHLORIDE
     Dosage: 15 MG, 2X/DAY (BID)
     Route: 048

REACTIONS (6)
  - Overdose [Unknown]
  - Diplopia [Recovered/Resolved]
  - Drug dispensing error [Unknown]
  - Vision blurred [Recovered/Resolved]
  - Pneumothorax [Recovered/Resolved]
  - Somnolence [Recovered/Resolved]

NARRATIVE: CASE EVENT DATE: 2014
